FAERS Safety Report 8483979-0 (Version None)
Quarter: 2012Q3

REPORT INFORMATION
  Report Type: 
  Country: None (occurrence: None)
  Receive Date: 20120703
  Receipt Date: 20120627
  Transmission Date: 20120928
  Serious: No
  Sender: FDA-Public Use
  Company Number: US-PFIZER INC-2012152644

PATIENT
  Sex: Male
  Weight: 102 kg

DRUGS (3)
  1. NARDIL [Suspect]
     Indication: DEPRESSION
  2. XANAX [Suspect]
     Indication: SLEEP DISORDER
     Dosage: 1 MG, DAILY
  3. NARDIL [Suspect]
     Indication: ANXIETY
     Dosage: 30 MG, 2X/DAY

REACTIONS (3)
  - INSOMNIA [None]
  - WEIGHT INCREASED [None]
  - DRUG INEFFECTIVE [None]
